FAERS Safety Report 4807929-0 (Version None)
Quarter: 2005Q4

REPORT INFORMATION
  Report Type: 
  Country: None (occurrence: None)
  Receive Date: 20051021
  Receipt Date: 20051005
  Transmission Date: 20060501
  Serious: Yes (Death)
  Sender: FDA-Public Use
  Company Number: 2005S1009252

PATIENT
  Age: 74 Year
  Sex: Male
  Weight: 78.9259 kg

DRUGS (9)
  1. CLOZAPINE [Suspect]
     Indication: SCHIZOPHRENIA, PARANOID TYPE
     Dosage: SEE IMAGE
     Route: 048
     Dates: start: 20030301, end: 20050901
  2. CLOZAPINE [Suspect]
     Indication: SCHIZOPHRENIA, PARANOID TYPE
     Dosage: SEE IMAGE
     Route: 048
     Dates: start: 20030301, end: 20050901
  3. FERROUS SULFATE TAB [Concomitant]
  4. ASPIRIN [Concomitant]
  5. VALPROATE SODIUM [Concomitant]
  6. THIAMINE [Concomitant]
  7. DOCUSATE SODIUM [Concomitant]
  8. AZITHROMYCIN [Concomitant]
  9. CEFTRIAXZONE [Concomitant]

REACTIONS (6)
  - ATRIAL FIBRILLATION [None]
  - GRANULOCYTOPENIA [None]
  - HYPOTENSION [None]
  - LOSS OF CONSCIOUSNESS [None]
  - PULSE ABSENT [None]
  - SUDDEN CARDIAC DEATH [None]
